FAERS Safety Report 20746876 (Version 2)
Quarter: 2022Q2

REPORT INFORMATION
  Report Type: Report from Study
  Country: US (occurrence: US)
  Receive Date: 20220425
  Receipt Date: 20220427
  Transmission Date: 20220720
  Serious: Yes (Hospitalization, Other)
  Sender: FDA-Public Use
  Company Number: US-UCBSA-2021019433

PATIENT
  Age: 65 Year
  Sex: Male

DRUGS (2)
  1. LEVETIRACETAM [Suspect]
     Active Substance: LEVETIRACETAM
     Indication: Seizure
     Dosage: 1500 MILLIGRAM, 2X/DAY (BID)
  2. VIMPAT [Suspect]
     Active Substance: LACOSAMIDE
     Indication: Product used for unknown indication
     Dosage: 200 MG

REACTIONS (5)
  - Seizure [Not Recovered/Not Resolved]
  - Brain injury [Not Recovered/Not Resolved]
  - Fall [Not Recovered/Not Resolved]
  - Speech disorder [Not Recovered/Not Resolved]
  - Product use issue [Unknown]

NARRATIVE: CASE EVENT DATE: 20210416
